FAERS Safety Report 7415831-3 (Version None)
Quarter: 2011Q2

REPORT INFORMATION
  Report Type: 
  Country: None (occurrence: None)
  Receive Date: 20110406
  Receipt Date: 20110322
  Transmission Date: 20111010
  Serious: Yes (Hospitalization, Other)
  Sender: FDA-Public Use
  Company Number: 2011MA002753

PATIENT
  Age: 40 Year
  Sex: Female

DRUGS (1)
  1. PHENYTOIN [Suspect]
     Indication: CONVULSION
     Dosage: 500 MG;1X;IVBOL
     Route: 040

REACTIONS (3)
  - INJECTION SITE NECROSIS [None]
  - PURPLE GLOVE SYNDROME [None]
  - INJECTION SITE ERYTHEMA [None]
